FAERS Safety Report 8957081 (Version 1)
Quarter: 2012Q4

REPORT INFORMATION
  Report Type: 
  Country: US (occurrence: US)
  Receive Date: 20121211
  Receipt Date: 20121211
  Transmission Date: 20130627
  Serious: Yes (Other)
  Sender: FDA-Public Use
  Company Number: US-BAYER-2012-128678

PATIENT
  Sex: Female

DRUGS (4)
  1. ALEVE CAPLET/TABLET,MIDOL EXTENDED RELIEF CAPLET [Suspect]
     Indication: PAIN
     Dosage: 800 mg, as required
     Route: 048
  2. LEUPROLIDE ACETATE [Suspect]
     Dosage: UNK
     Route: 030
     Dates: start: 20120730
  3. OXYCODONE [Concomitant]
     Indication: PAIN
  4. LUPRON - SLOW RELEASE [Concomitant]

REACTIONS (9)
  - Menorrhagia [Recovered/Resolved]
  - Vaginal haemorrhage [None]
  - Pain [None]
  - Mood altered [None]
  - Abdominal pain upper [Not Recovered/Not Resolved]
  - Drug ineffective [None]
  - Vaginal haemorrhage [None]
  - Menorrhagia [None]
  - Abdominal pain upper [None]
